FAERS Safety Report 17810015 (Version 1)
Quarter: 2020Q2

REPORT INFORMATION
  Report Type: Spontaneous
  Country: US (occurrence: US)
  Receive Date: 20200521
  Receipt Date: 20200521
  Transmission Date: 20200714
  Serious: No
  Sender: FDA-Public Use
  Company Number: US-STRIDES ARCOLAB LIMITED-2020SP003635

PATIENT

DRUGS (1)
  1. CINACALCET. [Suspect]
     Active Substance: CINACALCET
     Indication: HYPERPARATHYROIDISM SECONDARY
     Dosage: 0.55 MG/KG/DAY,PREPARE A SUSPENSION AT HOME BY CRUSHING A 30 MG TABLET AND DISSOLVING IT IN 10 ML OF

REACTIONS (2)
  - Wrong technique in product usage process [Unknown]
  - Hypocalcaemia [Unknown]
